FAERS Safety Report 4742619-4 (Version None)
Quarter: 2005Q3

REPORT INFORMATION
  Report Type: 
  Country: None (occurrence: None)
  Receive Date: 20050810
  Receipt Date: 20050728
  Transmission Date: 20060218
  Serious: Yes (Other)
  Sender: FDA-Public Use
  Company Number: 2005108458

PATIENT
  Age: 13 Year
  Sex: Female

DRUGS (1)
  1. LISTERINE (MENTHOL, METHYL SALICYLATE, EUCALYPTOL, THYMOL) [Suspect]
     Indication: DENTAL DISORDER PROPHYLAXIS
     Dosage: 1 LID ONCE, ORAL
     Route: 048
     Dates: start: 20050728, end: 20050728

REACTIONS (2)
  - ERUCTATION [None]
  - FOREIGN BODY TRAUMA [None]
